FAERS Safety Report 9631805 (Version 1)
Quarter: 2013Q4

REPORT INFORMATION
  Report Type: Spontaneous
  Country: US (occurrence: None)
  Receive Date: 20131017
  Receipt Date: 20131017
  Transmission Date: 20140711
  Serious: Yes (Other)
  Sender: FDA-Public Use
  Company Number: None

PATIENT
  Age: 27 Year
  Sex: Female
  Weight: 123.83 kg

DRUGS (1)
  1. MIRENA [Suspect]

REACTIONS (3)
  - Device related infection [None]
  - Intrauterine infection [None]
  - Infertility [None]
